FAERS Safety Report 16814667 (Version 1)
Quarter: 2019Q3

REPORT INFORMATION
  Report Type: Spontaneous
  Country: US (occurrence: US)
  Receive Date: 20190917
  Receipt Date: 20190917
  Transmission Date: 20191005
  Serious: No
  Sender: FDA-Public Use
  Company Number: US-ALLERGAN-1854191US

PATIENT
  Sex: Male

DRUGS (2)
  1. CITRUCEL [Concomitant]
     Active Substance: METHYLCELLULOSE (4000 MPA.S)
     Indication: CONSTIPATION
     Dosage: UNK
     Route: 048
  2. LINZESS [Suspect]
     Active Substance: LINACLOTIDE
     Indication: CONSTIPATION
     Dosage: 290 ?G, QHS
     Route: 048
     Dates: start: 2017

REACTIONS (3)
  - Inappropriate schedule of product administration [Unknown]
  - Drug ineffective for unapproved indication [Unknown]
  - Off label use [Unknown]
